FAERS Safety Report 13646596 (Version 3)
Quarter: 2017Q2

REPORT INFORMATION
  Report Type: Spontaneous
  Country: US (occurrence: US)
  Receive Date: 20170613
  Receipt Date: 20170616
  Transmission Date: 20170830
  Serious: No
  Sender: FDA-Public Use
  Company Number: US-PFIZER INC-2017254502

PATIENT
  Age: 85 Year
  Sex: Female
  Weight: 92.67 kg

DRUGS (7)
  1. TRIAMTERENE. [Concomitant]
     Active Substance: TRIAMTERENE
     Indication: MYOCARDIAL INFARCTION
     Dosage: UNK, 1X/DAY (37.5-25MG ONCE A DAY IN MORNING)
     Dates: start: 1999
  2. LYRICA [Suspect]
     Active Substance: PREGABALIN
     Indication: FIBROMYALGIA
     Dosage: WHITE CAPSULE ONCE A DAY AT BEDTIME
     Dates: start: 201705, end: 20170604
  3. OXYCODONE [Concomitant]
     Active Substance: OXYCODONE
     Indication: PAIN
     Dosage: 20 MG, AS NEEDED
  4. ATENOLOL. [Concomitant]
     Active Substance: ATENOLOL
     Indication: MYOCARDIAL INFARCTION
     Dosage: 25MG ONE EVERY MORNING A DAY
     Dates: start: 1999
  5. OXYCODONE [Concomitant]
     Active Substance: OXYCODONE
     Indication: OSTEOARTHRITIS
  6. LOSARTAN POTASSIUM. [Concomitant]
     Active Substance: LOSARTAN POTASSIUM
     Indication: BLOOD PRESSURE ABNORMAL
     Dosage: 25 MG, 1X/DAY
  7. VITAMIN D2 [Concomitant]
     Active Substance: ERGOCALCIFEROL
     Indication: BLOOD DISORDER
     Dosage: 1.25MG ONE CAP; 50,000UNITS THREE TIMES A WEEK, MWF

REACTIONS (5)
  - Vomiting [Not Recovered/Not Resolved]
  - Malaise [Unknown]
  - Feeling abnormal [Not Recovered/Not Resolved]
  - Retching [Unknown]
  - Back pain [Unknown]

NARRATIVE: CASE EVENT DATE: 20170606
